FAERS Safety Report 4330667-8 (Version None)
Quarter: 2004Q2

REPORT INFORMATION
  Report Type: 
  Country: None (occurrence: None)
  Receive Date: 20040402
  Receipt Date: 20040322
  Transmission Date: 20050107
  Serious: Yes (Hospitalization)
  Sender: FDA-Public Use
  Company Number: LU-GLAXOSMITHKLINE-B0328040A

PATIENT
  Age: 15 Year
  Sex: Female

DRUGS (1)
  1. SERETIDE [Suspect]

REACTIONS (1)
  - INTESTINAL OBSTRUCTION [None]
